FAERS Safety Report 6756790-6 (Version None)
Quarter: 2010Q2

REPORT INFORMATION
  Report Type: 
  Country: None (occurrence: None)
  Receive Date: 20100524
  Receipt Date: 20100211
  Transmission Date: 20101027
  Serious: No
  Sender: FDA-Public Use
  Company Number: 006837

PATIENT
  Sex: Female
  Weight: 57.7 kg

DRUGS (2)
  1. CIMZIA [Suspect]
     Indication: CROHN'S DISEASE
     Dosage: (400 MG SUBCUTANEOUS0
     Route: 058
     Dates: start: 20100101
  2. FLAGYL [Concomitant]

REACTIONS (4)
  - ACCIDENT [None]
  - ANKLE FRACTURE [None]
  - ARTHRALGIA [None]
  - HAEMATOMA [None]
